FAERS Safety Report 10459403 (Version 1)
Quarter: 2014Q3

REPORT INFORMATION
  Report Type: Spontaneous
  Country: US (occurrence: None)
  Receive Date: 20140915
  Receipt Date: 20140915
  Transmission Date: 20150326
  Serious: Yes (Hospitalization)
  Sender: FDA-Public Use
  Company Number: 2014US003670

PATIENT
  Age: 54 Year
  Sex: Female
  Weight: 50 kg

DRUGS (14)
  1. LOVENOX [Concomitant]
     Active Substance: ENOXAPARIN SODIUM
  2. PROMETHAZINE [Concomitant]
     Active Substance: PROMETHAZINE\PROMETHAZINE HYDROCHLORIDE
  3. ACYCLOVIR. [Concomitant]
     Active Substance: ACYCLOVIR
  4. MONTELUKAST [Concomitant]
     Active Substance: MONTELUKAST SODIUM
  5. PONATINIB (AP24534) TABLET [Suspect]
     Active Substance: PONATINIB
     Indication: CHRONIC MYELOID LEUKAEMIA
     Route: 048
     Dates: start: 20110414, end: 20140825
  6. ESTRADIOL. [Concomitant]
     Active Substance: ESTRADIOL
  7. RANITIDINE [Concomitant]
     Active Substance: RANITIDINE\RANITIDINE HYDROCHLORIDE
  8. VALIUM [Concomitant]
     Active Substance: DIAZEPAM
  9. WARFARIN [Concomitant]
     Active Substance: WARFARIN
  10. FLURAZEPAM [Concomitant]
     Active Substance: FLURAZEPAM\FLURAZEPAM HYDROCHLORIDE
  11. POTASSIUM [Concomitant]
     Active Substance: POTASSIUM
  12. REQUIP [Concomitant]
     Active Substance: ROPINIROLE HYDROCHLORIDE
  13. OLANZAPINE. [Concomitant]
     Active Substance: OLANZAPINE
  14. SENEXON-S (DOCUSATE SODIUM, SENNOSIDE A+B) [Concomitant]

REACTIONS (7)
  - Haemoglobin decreased [None]
  - Pain in extremity [None]
  - Platelet count decreased [None]
  - Blood potassium decreased [None]
  - Hypotension [None]
  - Neutrophil count decreased [None]
  - Dyspnoea [None]

NARRATIVE: CASE EVENT DATE: 20140831
